FAERS Safety Report 4999440-1 (Version None)
Quarter: 2006Q2

REPORT INFORMATION
  Report Type: 
  Country: None (occurrence: None)
  Receive Date: 20060509
  Receipt Date: 20060509
  Transmission Date: 20061013
  Serious: Yes (Life-Threatening)
  Sender: FDA-Public Use
  Company Number: None

PATIENT
  Age: 76 Year
  Sex: Female

DRUGS (8)
  1. NAFCILLIN SODIUM [Suspect]
     Indication: STAPHYLOCOCCAL INFECTION
     Dosage: 2GM IV Q 4HOURS
     Route: 042
     Dates: start: 20060108, end: 20060116
  2. CEFEPIME [Suspect]
     Indication: FEBRILE NEUTROPENIA
     Dosage: 1GM  IV  Q 24HOURS
     Route: 042
     Dates: start: 20060106, end: 20060117
  3. LANSOPRAZOLE [Concomitant]
  4. DOCUSATE [Concomitant]
  5. NEUPOGEN [Concomitant]
  6. FLUTICASONE PROPIONATE [Concomitant]
  7. PREDNISONE TAB [Concomitant]
  8. M.V.I. [Concomitant]

REACTIONS (5)
  - BLOOD CREATININE INCREASED [None]
  - BLOOD CULTURE POSITIVE [None]
  - DRUG HYPERSENSITIVITY [None]
  - NEPHRITIS INTERSTITIAL [None]
  - STAPHYLOCOCCAL INFECTION [None]
